FAERS Safety Report 8354008-4 (Version None)
Quarter: 2012Q2

REPORT INFORMATION
  Report Type: 
  Country: None (occurrence: None)
  Receive Date: 20120511
  Receipt Date: 20120507
  Transmission Date: 20120825
  Serious: Yes (Other)
  Sender: FDA-Public Use
  Company Number: US-ABBOTT-12P-163-0909074-00

PATIENT
  Sex: Female
  Weight: 79.904 kg

DRUGS (1)
  1. SIMCOR [Suspect]
     Indication: HYPERLIPIDAEMIA
     Dosage: 500/40MG AT BEDTIME

REACTIONS (5)
  - BREAST CANCER [None]
  - PARAESTHESIA [None]
  - FLUSHING [None]
  - PRURITUS [None]
  - ERYTHEMA [None]
